FAERS Safety Report 5415642-4 (Version None)
Quarter: 2007Q3

REPORT INFORMATION
  Report Type: 
  Country: None (occurrence: None)
  Receive Date: 20070815
  Receipt Date: 20070809
  Transmission Date: 20080115
  Serious: Yes (Death)
  Sender: FDA-Public Use
  Company Number: IT-JNJFOC-20070802075

PATIENT
  Sex: Male

DRUGS (4)
  1. RISPERDAL [Suspect]
     Indication: ANXIETY DISORDER
     Route: 048
  2. DEPAKOTE [Concomitant]
  3. DELTACORTENE [Concomitant]
  4. LIORESAL [Concomitant]

REACTIONS (6)
  - CONVULSION [None]
  - HYPERTHERMIA [None]
  - METABOLIC ACIDOSIS [None]
  - MUSCULOSKELETAL STIFFNESS [None]
  - TACHYCARDIA [None]
  - TACHYPNOEA [None]
